FAERS Safety Report 8101426-5 (Version None)
Quarter: 2012Q1

REPORT INFORMATION
  Report Type: 
  Country: None (occurrence: None)
  Receive Date: 20120129
  Receipt Date: 20110907
  Transmission Date: 20120608
  Serious: No
  Sender: FDA-Public Use
  Company Number: US-ABBOTT-11P-163-0852505-00

PATIENT
  Age: 54 Year
  Sex: Male

DRUGS (6)
  1. HYDROCHLOROTHIAZIDE [Concomitant]
     Indication: PRODUCT USED FOR UNKNOWN INDICATION
  2. PRAVASTATIN SODIUM [Concomitant]
     Indication: PRODUCT USED FOR UNKNOWN INDICATION
     Dosage: 80MG DAILY
  3. FEXOFENADINE [Concomitant]
     Indication: HYPERSENSITIVITY
  4. HUMIRA [Suspect]
     Indication: PSORIASIS
     Dates: start: 20110829
  5. AMBIEN [Concomitant]
     Indication: PRODUCT USED FOR UNKNOWN INDICATION
  6. CAPTOPRIL [Concomitant]
     Indication: HYPERTENSION
     Dosage: 10/20MG DAILY

REACTIONS (8)
  - SKIN FISSURES [None]
  - RASH [None]
  - PRURITUS [None]
  - DANDRUFF [None]
  - OEDEMA PERIPHERAL [None]
  - ARTHRALGIA [None]
  - ERYTHEMA [None]
  - SKIN DISORDER [None]
